FAERS Safety Report 10211479 (Version 1)
Quarter: 2014Q2

REPORT INFORMATION
  Report Type: Report from Study
  Country: US (occurrence: US)
  Receive Date: 20140602
  Receipt Date: 20140602
  Transmission Date: 20141212
  Serious: Yes (Hospitalization, Other)
  Sender: FDA-Public Use
  Company Number: US-SA-2014SA067523

PATIENT
  Age: 58 Year
  Sex: Female

DRUGS (1)
  1. AUBAGIO [Suspect]
     Indication: MULTIPLE SCLEROSIS
     Route: 048
     Dates: start: 20140321

REACTIONS (6)
  - Chronic obstructive pulmonary disease [Unknown]
  - Pneumonia [Unknown]
  - Abasia [Unknown]
  - Decreased appetite [Unknown]
  - Electrolyte imbalance [Unknown]
  - Weight decreased [Unknown]
